FAERS Safety Report 9771925 (Version 3)
Quarter: 2014Q1

REPORT INFORMATION
  Report Type: Spontaneous
  Country: SI (occurrence: SI)
  Receive Date: 20131219
  Receipt Date: 20140127
  Transmission Date: 20141002
  Serious: Yes (Life-Threatening, Hospitalization, Other)
  Sender: FDA-Public Use
  Company Number: SI-AMGEN-SVNSP2013087951

PATIENT
  Age: 58 Year
  Sex: Female
  Weight: 93 kg

DRUGS (6)
  1. XGEVA [Suspect]
     Indication: METASTASES TO BONE
     Dosage: 5 UNK, Q4MO
     Route: 058
     Dates: start: 20130712, end: 20131103
  2. XGEVA [Suspect]
     Indication: BREAST CANCER
  3. PACLITAXEL [Concomitant]
     Indication: CHEMOTHERAPY
     Dosage: 40 MG, QWK
     Route: 048
     Dates: start: 20130926
  4. NOLVADEX                           /00388701/ [Concomitant]
     Dosage: 20 MG, QD
     Route: 048
     Dates: start: 20130712, end: 20130925
  5. PLIVIT D3 [Concomitant]
     Indication: PROPHYLAXIS
     Dosage: 5 G/L, QD
     Route: 048
     Dates: start: 20130712
  6. CALCIUM CARBONATE [Concomitant]
     Indication: PROPHYLAXIS
     Dosage: 500 MG, TID
     Route: 048
     Dates: start: 20130712

REACTIONS (6)
  - Blood magnesium decreased [Not Recovered/Not Resolved]
  - Electrocardiogram QT prolonged [Unknown]
  - Cardiac disorder [Recovering/Resolving]
  - Palpitations [Recovering/Resolving]
  - Hypocalcaemia [Recovering/Resolving]
  - Muscle spasms [Recovering/Resolving]
